FAERS Safety Report 15320764 (Version 6)
Quarter: 2018Q4

REPORT INFORMATION
  Report Type: Report from Study
  Country: BR (occurrence: BR)
  Receive Date: 20180827
  Receipt Date: 20181207
  Transmission Date: 20190204
  Serious: Yes (Hospitalization, Other)
  Sender: FDA-Public Use
  Company Number: PHHY2018BR080487

PATIENT
  Age: 58 Year
  Sex: Male
  Weight: 76 kg

DRUGS (6)
  1. VOTRIENT [Suspect]
     Active Substance: PAZOPANIB HYDROCHLORIDE
     Indication: METASTATIC RENAL CELL CARCINOMA
     Dosage: 800 MG, QD
     Route: 048
     Dates: start: 20180514
  2. RANITIDINE. [Concomitant]
     Active Substance: RANITIDINE
     Indication: PRODUCT USED FOR UNKNOWN INDICATION
     Route: 065
  3. VOTRIENT [Interacting]
     Active Substance: PAZOPANIB HYDROCHLORIDE
     Dosage: 800 MG, QD
     Route: 048
  4. PANTOPRAZOLE [Interacting]
     Active Substance: PANTOPRAZOLE
     Indication: PRODUCT USED FOR UNKNOWN INDICATION
     Dosage: UNK
     Route: 065
     Dates: end: 201808
  5. VOTRIENT [Interacting]
     Active Substance: PAZOPANIB HYDROCHLORIDE
     Dosage: 800 MG, QD
     Route: 048
     Dates: start: 201805
  6. VOTRIENT [Interacting]
     Active Substance: PAZOPANIB HYDROCHLORIDE
     Dosage: 800 MG, QD
     Route: 048

REACTIONS (47)
  - Nodule [Recovering/Resolving]
  - Retching [Not Recovered/Not Resolved]
  - Faeces hard [Not Recovered/Not Resolved]
  - Fatigue [Not Recovered/Not Resolved]
  - Laryngeal oedema [Recovered/Resolved]
  - Metastasis [Unknown]
  - Scab [Not Recovered/Not Resolved]
  - Nausea [Not Recovered/Not Resolved]
  - Blood pressure increased [Not Recovered/Not Resolved]
  - Infection [Unknown]
  - Pleural effusion [Recovered/Resolved]
  - Pulmonary oedema [Recovered/Resolved]
  - Dehydration [Unknown]
  - Abdominal distension [Not Recovered/Not Resolved]
  - Ill-defined disorder [Recovering/Resolving]
  - Blood thyroid stimulating hormone abnormal [Recovered/Resolved]
  - Rash [Not Recovered/Not Resolved]
  - Skin discolouration [Not Recovered/Not Resolved]
  - Post procedural infection [Recovered/Resolved]
  - Dermatitis [Not Recovered/Not Resolved]
  - Constipation [Recovered/Resolved]
  - Vomiting [Not Recovered/Not Resolved]
  - Somnolence [Not Recovered/Not Resolved]
  - Hyperaesthesia [Not Recovered/Not Resolved]
  - Faeces soft [Not Recovered/Not Resolved]
  - Gait disturbance [Not Recovered/Not Resolved]
  - Drug interaction [Recovered/Resolved]
  - Decreased appetite [Not Recovered/Not Resolved]
  - Reflux gastritis [Not Recovered/Not Resolved]
  - Anal fissure [Not Recovered/Not Resolved]
  - Haematochezia [Not Recovered/Not Resolved]
  - Aggression [Not Recovered/Not Resolved]
  - Swelling [Not Recovered/Not Resolved]
  - Diarrhoea [Not Recovered/Not Resolved]
  - Memory impairment [Recovering/Resolving]
  - Oropharyngeal pain [Not Recovered/Not Resolved]
  - Productive cough [Not Recovered/Not Resolved]
  - Pyrexia [Unknown]
  - Genital rash [Recovered/Resolved]
  - Weight decreased [Not Recovered/Not Resolved]
  - Metastases to lung [Recovering/Resolving]
  - Sleep deficit [Not Recovered/Not Resolved]
  - Discomfort [Not Recovered/Not Resolved]
  - Rhinitis allergic [Not Recovered/Not Resolved]
  - Genital erythema [Not Recovered/Not Resolved]
  - Hair colour changes [Not Recovered/Not Resolved]
  - Musculoskeletal pain [Not Recovered/Not Resolved]

NARRATIVE: CASE EVENT DATE: 201805
